FAERS Safety Report 7764767-7 (Version None)
Quarter: 2011Q3

REPORT INFORMATION
  Report Type: 
  Country: None (occurrence: None)
  Receive Date: 20110921
  Receipt Date: 20110921
  Transmission Date: 20111222
  Serious: Yes (Other)
  Sender: FDA-Public Use
  Company Number: None

PATIENT
  Age: 46 Year
  Sex: Female

DRUGS (7)
  1. PLAVIX [Concomitant]
  2. LISINOPRIL [Suspect]
     Indication: HYPERTENSION
     Dosage: 40 MG
     Route: 048
     Dates: start: 20091005, end: 20110920
  3. LISINOPRIL [Suspect]
     Indication: RENAL DISORDER
     Dosage: 40 MG
     Route: 048
     Dates: start: 20091005, end: 20110920
  4. PRAVACHOL [Concomitant]
  5. CARVEDILOL [Concomitant]
  6. ASPIRIN [Concomitant]
  7. HYDROCHLOROTHIAZIDE [Concomitant]

REACTIONS (1)
  - ANGIOEDEMA [None]
